FAERS Safety Report 9905130 (Version 1)
Quarter: 2014Q1

REPORT INFORMATION
  Report Type: Spontaneous
  Country: US (occurrence: None)
  Receive Date: 20140212
  Receipt Date: 20140212
  Transmission Date: 20141002
  Serious: Yes (Hospitalization)
  Sender: FDA-Public Use
  Company Number: None

PATIENT
  Age: 72 Year
  Sex: 0
  Weight: 90.72 kg

DRUGS (1)
  1. PERINDOPRIL [Suspect]
     Indication: HYPERTENSION
     Route: 048
     Dates: start: 20120406, end: 20130410

REACTIONS (2)
  - Pancreatitis [None]
  - Pancreatolithiasis [None]
